FAERS Safety Report 7388613-9 (Version None)
Quarter: 2011Q2

REPORT INFORMATION
  Report Type: 
  Country: None (occurrence: None)
  Receive Date: 20110401
  Receipt Date: 20110318
  Transmission Date: 20111010
  Serious: Yes (Life-Threatening, Hospitalization, Other)
  Sender: FDA-Public Use
  Company Number: DE-PFIZER INC-2011007636

PATIENT
  Age: 67 Year
  Sex: Female

DRUGS (10)
  1. AMLODIPINE BESILATE [Suspect]
     Indication: HYPERTENSION
     Dosage: 5 MG, UNK
     Route: 048
     Dates: start: 20101103, end: 20101103
  2. IBUPROFEN [Suspect]
     Dosage: 400 MG, SINGLE
     Route: 048
     Dates: start: 20101103, end: 20101103
  3. RAMIPRIL [Suspect]
     Dosage: 2.5 MG, 2X/DAY
     Route: 048
     Dates: start: 20100923, end: 20101102
  4. DELIX [Suspect]
     Dosage: 2.5 MG, 1X/DAY
     Dates: start: 20101118, end: 20101129
  5. RAMIPRIL [Suspect]
     Dosage: UNK
     Route: 048
     Dates: start: 20101105
  6. AMLODIPINE BESILATE [Suspect]
     Dosage: 5 MG, UNK
     Route: 048
     Dates: start: 20101105, end: 20101109
  7. CORDAREX [Suspect]
     Indication: ATRIAL FIBRILLATION
     Dosage: 600 MG, 1X/DAY
     Route: 048
     Dates: start: 20101103, end: 20101109
  8. DELIX [Suspect]
     Indication: PRODUCT USED FOR UNKNOWN INDICATION
     Dosage: 2.5 MG, 2X/DAY
     Route: 048
     Dates: start: 20101105, end: 20101109
  9. IBUPROFEN [Suspect]
     Indication: SPINAL OSTEOARTHRITIS
     Dosage: UNK
     Route: 048
     Dates: end: 20101102
  10. DICLOFENAC [Suspect]
     Indication: SPINAL OSTEOARTHRITIS
     Dosage: UNK
     Route: 048
     Dates: end: 20101102

REACTIONS (3)
  - RENAL FAILURE ACUTE [None]
  - NEPHROPATHY TOXIC [None]
  - TUBULOINTERSTITIAL NEPHRITIS [None]
